FAERS Safety Report 10204918 (Version 1)
Quarter: 2014Q2

REPORT INFORMATION
  Report Type: Spontaneous
  Country: PL (occurrence: PL)
  Receive Date: 20140529
  Receipt Date: 20140529
  Transmission Date: 20141212
  Serious: Yes (Hospitalization)
  Sender: FDA-Public Use
  Company Number: PHHY2014PL060293

PATIENT
  Age: 58 Year
  Sex: Female

DRUGS (2)
  1. METOPROLOL [Suspect]
     Indication: ATRIAL FIBRILLATION
     Dosage: 50 MG PER DAY
  2. PROPAFENONE [Suspect]
     Indication: ATRIAL FIBRILLATION
     Dosage: 300 MG PER DAY

REACTIONS (5)
  - Brugada syndrome [Unknown]
  - Arrhythmia [Recovered/Resolved]
  - Atrial fibrillation [Recovered/Resolved]
  - Palpitations [Recovered/Resolved]
  - Syncope [Recovered/Resolved]
